FAERS Safety Report 18783647 (Version 7)
Quarter: 2021Q1

REPORT INFORMATION
  Report Type: Spontaneous
  Country: CA (occurrence: CA)
  Receive Date: 20210125
  Receipt Date: 20210331
  Transmission Date: 20210419
  Serious: Yes (Death, Hospitalization, Other)
  Sender: FDA-Public Use
  Company Number: CA-PFIZER INC-2021025439

PATIENT
  Age: 71 Year
  Sex: Male
  Weight: 90.8 kg

DRUGS (16)
  1. ZIRABEV [Suspect]
     Active Substance: BEVACIZUMAB-BVZR
     Dosage: 1400 MG, EVERY 3 WEEKS
     Route: 042
     Dates: start: 20210129
  2. TAMSULOSIN CR [Concomitant]
     Active Substance: TAMSULOSIN
     Dosage: 0.4 MG, DAILY
  3. BISOPROLOL [Concomitant]
     Active Substance: BISOPROLOL
     Dosage: 1.75 MG, DAILY
  4. ZIRABEV [Suspect]
     Active Substance: BEVACIZUMAB-BVZR
     Indication: RADIATION NECROSIS
     Dosage: 15 MG/KG (1400 MG) EVERY 3 WEEKS FOR 4 INFUSIONS
     Route: 042
     Dates: end: 202004
  5. ZIRABEV [Suspect]
     Active Substance: BEVACIZUMAB-BVZR
     Dosage: 1400 MG, EVERY 3 WEEKS
     Route: 042
     Dates: start: 20210226
  6. ASPIRIN 81 [Concomitant]
     Active Substance: ASPIRIN
     Dosage: 81 MG, DAILY
  7. PANTOPRAZOLE [Concomitant]
     Active Substance: PANTOPRAZOLE
     Dosage: 40 MG, DAILY
  8. ACTONEL [Concomitant]
     Active Substance: RISEDRONATE SODIUM
     Dosage: 35 MG, ONCE PER WEEK
  9. ROSUVASTATIN. [Concomitant]
     Active Substance: ROSUVASTATIN
     Dosage: 40 MG, DAILY
  10. VENTOLIN [Concomitant]
     Active Substance: ALBUTEROL SULFATE
     Dosage: TWO PUFFS FOUR TIMES A DAY P.R.N
  11. ZIRABEV [Suspect]
     Active Substance: BEVACIZUMAB-BVZR
     Dosage: 1400 MG, EVERY 3 WEEKS
     Route: 042
     Dates: start: 20210129
  12. ZIRABEV [Suspect]
     Active Substance: BEVACIZUMAB-BVZR
     Dosage: 1400 MG, EVERY 3 WEEKS
     Route: 042
     Dates: start: 20210226
  13. CYMBALTA [Concomitant]
     Active Substance: DULOXETINE HYDROCHLORIDE
     Dosage: 60 MG, DAILY
  14. LISINOPRIL. [Concomitant]
     Active Substance: LISINOPRIL
     Dosage: 5 MG, DAILY
  15. MELATONIN [Concomitant]
     Active Substance: MELATONIN
     Dosage: 0.5 MG, AT BEDTIME
  16. SPIRIVA [Concomitant]
     Active Substance: TIOTROPIUM BROMIDE MONOHYDRATE
     Dosage: 2 PUFFS PER DAY

REACTIONS (11)
  - Seizure [Unknown]
  - Asthma [Unknown]
  - Blood glucose increased [Unknown]
  - Agitation [Unknown]
  - Fall [Unknown]
  - Confusional state [Unknown]
  - Death [Fatal]
  - Drug effective for unapproved indication [Unknown]
  - Partial seizures [Unknown]
  - Cognitive disorder [Unknown]
  - Off label use [Unknown]

NARRATIVE: CASE EVENT DATE: 202004
